FAERS Safety Report 5965630-4 (Version None)
Quarter: 2008Q4

REPORT INFORMATION
  Report Type: 
  Country: None (occurrence: None)
  Receive Date: 20081119
  Receipt Date: 20080910
  Transmission Date: 20090506
  Serious: No
  Sender: FDA-Public Use
  Company Number: WAES 0809USA01572

PATIENT
  Age: 77 Year
  Sex: Male

DRUGS (3)
  1. JANUVIA [Suspect]
     Indication: DIABETES MELLITUS
     Dosage: 50 MG/DAILY/PO
     Route: 048
     Dates: start: 20080101
  2. COZAAR [Concomitant]
  3. INSULIN [Concomitant]

REACTIONS (2)
  - ORAL DISCOMFORT [None]
  - STOMATITIS [None]
